FAERS Safety Report 13901159 (Version 1)
Quarter: 2017Q3

REPORT INFORMATION
  Report Type: Spontaneous
  Country: US (occurrence: US)
  Receive Date: 20170824
  Receipt Date: 20170824
  Transmission Date: 20171127
  Serious: No
  Sender: FDA-Public Use
  Company Number: US-BAYER-2017-157571

PATIENT
  Sex: Female

DRUGS (1)
  1. CLIMARA PRO [Suspect]
     Active Substance: ESTRADIOL\LEVONORGESTREL
     Indication: HORMONE REPLACEMENT THERAPY
     Dosage: 0.045MG ESTRADIOL/0.015MG LEVONORGESTREL
     Route: 062

REACTIONS (7)
  - Rash [Unknown]
  - Oral pruritus [Unknown]
  - Device breakage [None]
  - Palpitations [Unknown]
  - Product physical issue [None]
  - Acne [None]
  - Nasal pruritus [Unknown]
